FAERS Safety Report 20425485 (Version 1)
Quarter: 2022Q1

REPORT INFORMATION
  Report Type: Spontaneous
  Country: JP (occurrence: JP)
  Receive Date: 20220204
  Receipt Date: 20220204
  Transmission Date: 20220424
  Serious: No
  Sender: FDA-Public Use
  Company Number: JP-TAKEDA-2021TJP010456

PATIENT
  Sex: Female

DRUGS (1)
  1. CABOMETYX [Suspect]
     Active Substance: CABOZANTINIB S-MALATE
     Indication: Hepatocellular carcinoma
     Dosage: 20 MG, QD
     Route: 048
     Dates: start: 20210224, end: 20210330

REACTIONS (5)
  - Oedema [Unknown]
  - Hypertension [Unknown]
  - Headache [Unknown]
  - Palmar-plantar erythrodysaesthesia syndrome [Unknown]
  - Proteinuria [Unknown]
